FAERS Safety Report 13987843 (Version 1)
Quarter: 2017Q3

REPORT INFORMATION
  Report Type: Report from Study
  Country: JP (occurrence: JP)
  Receive Date: 20170919
  Receipt Date: 20170919
  Transmission Date: 20171128
  Serious: Yes (Hospitalization)
  Sender: FDA-Public Use
  Company Number: JP-DSJP-DSJ-2017-137076

PATIENT

DRUGS (53)
  1. THEO-DUR [Concomitant]
     Active Substance: THEOPHYLLINE ANHYDROUS
     Dosage: 200G/DAY
     Route: 048
  2. OMEPRAZOLE                         /00661202/ [Concomitant]
     Dosage: 40MG/DAY
     Route: 042
     Dates: start: 20160128, end: 20160131
  3. THERARUBICIN                       /00963102/ [Concomitant]
     Dosage: 30G/DAY
     Route: 042
     Dates: start: 20160405, end: 20160405
  4. LOXONIN [Concomitant]
     Active Substance: LOXOPROFEN SODIUM
     Dosage: 1DF/DAY
     Route: 050
     Dates: start: 20161121
  5. HEPARIN [Concomitant]
     Active Substance: HEPARIN SODIUM
     Dosage: 20000IU/DAY
     Route: 042
     Dates: start: 20170401, end: 20170405
  6. OLMETEC [Concomitant]
     Active Substance: OLMESARTAN MEDOXOMIL
     Dosage: 20MG/DAY
     Route: 048
     Dates: end: 20160704
  7. ZYLORIC [Concomitant]
     Active Substance: ALLOPURINOL
     Dosage: 100MG/DAY
     Route: 048
     Dates: end: 20160725
  8. FLUITRAN [Concomitant]
     Active Substance: TRICHLORMETHIAZIDE
     Dosage: 0.5MG/DAY
     Route: 048
  9. MAGLAX [Concomitant]
     Active Substance: MAGNESIUM OXIDE
     Dosage: 4DF/DAY
     Route: 048
  10. FENELMIN [Concomitant]
     Dosage: 100MG/DAY
     Route: 048
     Dates: start: 20150821, end: 20160128
  11. ARCRANE [Concomitant]
     Dosage: 60ML/DAY
     Route: 048
     Dates: start: 20160130, end: 20160704
  12. FLUCONAZOLE. [Concomitant]
     Active Substance: FLUCONAZOLE
     Dosage: 100MG/DAY
     Route: 048
     Dates: start: 20160205
  13. RITUXAN [Concomitant]
     Active Substance: RITUXIMAB
     Dosage: 675MG/DAY
     Route: 042
     Dates: start: 20160215, end: 20160215
  14. RITUXAN [Concomitant]
     Active Substance: RITUXIMAB
     Dosage: 660MG/DAY
     Route: 042
     Dates: start: 20160307, end: 20160307
  15. RITUXAN [Concomitant]
     Active Substance: RITUXIMAB
     Dosage: 650MG/DAY
     Route: 042
     Dates: start: 20160323, end: 20160323
  16. RITUXAN [Concomitant]
     Active Substance: RITUXIMAB
     Dosage: 633MG/DAY
     Route: 042
     Dates: start: 20160425, end: 20160425
  17. GOSHAJINKIGAN [Concomitant]
     Active Substance: HERBALS
     Dosage: 7.5G/DAY
     Route: 048
     Dates: start: 20161024, end: 20161121
  18. CEFLONIC [Concomitant]
     Active Substance: CEFOPERAZONE SODIUM\SULBACTAM SODIUM
     Dosage: 3G/DAY
     Route: 042
     Dates: start: 20161028, end: 20161107
  19. EDOXABAN [Suspect]
     Active Substance: EDOXABAN TOSYLATE
     Dosage: 30 MG, QD
     Route: 048
     Dates: start: 20170408, end: 20170412
  20. OMEPRAZOLE                         /00661202/ [Concomitant]
     Dosage: 40MG/DAY
     Route: 042
     Dates: start: 20170401, end: 20170417
  21. RITUXAN [Concomitant]
     Active Substance: RITUXIMAB
     Dosage: 660MG/DAY
     Route: 042
     Dates: start: 20160229, end: 20160229
  22. NEUTROGIN [Concomitant]
     Active Substance: LENOGRASTIM
     Dosage: 100UG/DAY
     Route: 042
     Dates: start: 20160421, end: 20160926
  23. MIYA-BM [Concomitant]
     Active Substance: CLOSTRIDIUM BUTYRICUM SPORES STRAIN M-55
     Dosage: 3DF/DAY
     Route: 048
     Dates: start: 20161108, end: 20161115
  24. CEFMETAZOLE SODIUM [Concomitant]
     Active Substance: CEFMETAZOLE SODIUM
     Dosage: 2G/DAY
     Route: 042
     Dates: start: 20170401, end: 20170417
  25. EDOXABAN [Suspect]
     Active Substance: EDOXABAN TOSYLATE
     Dosage: 30 MG, QD
     Route: 048
     Dates: start: 20170121, end: 20170331
  26. NEXIUM [Concomitant]
     Active Substance: ESOMEPRAZOLE MAGNESIUM
     Dosage: 20MG/DAY
     Route: 048
     Dates: start: 20150818, end: 20160313
  27. SIMVASTATIN. [Concomitant]
     Active Substance: SIMVASTATIN
     Dosage: 10MG/DAY
     Route: 048
  28. CALONAL [Concomitant]
     Active Substance: ACETAMINOPHEN
     Dosage: 500MG/DAY
     Route: 048
     Dates: start: 20160207, end: 20170730
  29. RITUXAN [Concomitant]
     Active Substance: RITUXIMAB
     Dosage: 675MG/DAY
     Route: 042
     Dates: start: 20160208, end: 20160208
  30. ONCOVIN [Concomitant]
     Active Substance: VINCRISTINE SULFATE
     Dosage: 1MG/DAY
     Route: 042
     Dates: start: 20160405, end: 20160405
  31. ENDOXAN                            /00021101/ [Concomitant]
     Active Substance: CYCLOPHOSPHAMIDE
     Dosage: 500MG/DAY
     Route: 042
     Dates: start: 20160426, end: 20160426
  32. LEVOFLOXACIN                       /01278903/ [Concomitant]
     Active Substance: LEVOFLOXACIN
     Dosage: 500MG/DAY
     Route: 048
     Dates: start: 20161108, end: 20161115
  33. EDOXABAN [Suspect]
     Active Substance: EDOXABAN TOSYLATE
     Dosage: 30 MG, QD
     Route: 048
     Dates: start: 20170419
  34. CONIEL [Concomitant]
     Active Substance: BENIDIPINE HYDROCHLORIDE
     Dosage: 8MG/DAY
     Route: 048
     Dates: end: 20160704
  35. HICEE                              /00008001/ [Concomitant]
     Dosage: 2DF/DAY
     Route: 048
     Dates: start: 20150821, end: 20160128
  36. REBAMIPIDE [Concomitant]
     Active Substance: REBAMIPIDE
     Dosage: 300MG/DAY
     Route: 048
     Dates: start: 20160130
  37. RITUXAN [Concomitant]
     Active Substance: RITUXIMAB
     Dosage: 660MG/DAY
     Route: 042
     Dates: start: 20160222, end: 20160222
  38. ONCOVIN [Concomitant]
     Active Substance: VINCRISTINE SULFATE
     Dosage: 1MG/DAY
     Route: 042
     Dates: start: 20160426, end: 20160426
  39. THERARUBICIN                       /00963102/ [Concomitant]
     Dosage: 30G/DAY
     Route: 042
     Dates: start: 20160426, end: 20160426
  40. EDOXABAN [Suspect]
     Active Substance: EDOXABAN TOSYLATE
     Dosage: 30 MG, QD
     Route: 048
     Dates: start: 20161103, end: 20170119
  41. HEPARIN [Concomitant]
     Active Substance: HEPARIN SODIUM
     Dosage: 20000IU/DAY
     Route: 042
     Dates: start: 20160310, end: 20160313
  42. DAIPHEN [Concomitant]
     Active Substance: SULFAMETHOXAZOLE\TRIMETHOPRIM
     Dosage: 1DF/3 TIMES/WK
     Route: 048
     Dates: start: 20160208, end: 20160226
  43. ENDOXAN                            /00021101/ [Concomitant]
     Active Substance: CYCLOPHOSPHAMIDE
     Dosage: 500MG/DAY
     Route: 042
     Dates: start: 20160405, end: 20160405
  44. EDOXABAN [Suspect]
     Active Substance: EDOXABAN TOSYLATE
     Dosage: 30 MG, QD
     Route: 048
     Dates: start: 20160315, end: 20161101
  45. VERAPAMIL                          /00014302/ [Concomitant]
     Active Substance: VERAPAMIL HYDROCHLORIDE
     Indication: ATRIAL FIBRILLATION
     Dosage: 80MG/DAY
     Route: 048
  46. TIZANIDINE                         /00740702/ [Concomitant]
     Active Substance: TIZANIDINE HYDROCHLORIDE
     Dosage: 3MG/DAY
     Route: 048
     Dates: start: 20151014, end: 20151024
  47. RITUXAN [Concomitant]
     Active Substance: RITUXIMAB
     Dosage: 645MG/DAY
     Route: 048
     Dates: start: 20160404, end: 20160404
  48. EDOXABAN [Suspect]
     Active Substance: EDOXABAN TOSYLATE
     Indication: ATRIAL FIBRILLATION
     Dosage: 30 MG, QD
     Route: 048
     Dates: start: 20150825, end: 20160127
  49. WARFARIN                           /00014803/ [Concomitant]
     Active Substance: WARFARIN
     Dosage: 4.25MG/DAY
     Route: 048
     Dates: end: 20150817
  50. BETAHISTINE MESILATE [Concomitant]
     Active Substance: BETAHISTINE MESILATE
     Dosage: 18MG/DAY
     Route: 048
     Dates: start: 20151014, end: 20151024
  51. METHYCOBAL [Concomitant]
     Active Substance: METHYLCOBALAMIN
     Dosage: 1.5MG/DAY
     Route: 048
     Dates: start: 20151014, end: 20151024
  52. PREDONINE [Concomitant]
     Active Substance: PREDNISOLONE
     Dosage: 30MG/DAY
     Route: 048
     Dates: start: 20160404, end: 20160408
  53. PREDONINE [Concomitant]
     Active Substance: PREDNISOLONE
     Dosage: 30MG/DAY
     Route: 048
     Dates: start: 20160425, end: 20160429

REACTIONS (4)
  - Cholecystitis [Recovering/Resolving]
  - Post procedural haemorrhage [Recovered/Resolved]
  - Cholangitis [Recovering/Resolving]
  - Sepsis [Recovered/Resolved]

NARRATIVE: CASE EVENT DATE: 20161028
